FAERS Safety Report 6151619-1 (Version None)
Quarter: 2009Q2

REPORT INFORMATION
  Report Type: 
  Country: None (occurrence: None)
  Receive Date: 20090410
  Receipt Date: 20090401
  Transmission Date: 20091009
  Serious: Yes (Other)
  Sender: FDA-Public Use
  Company Number: BR-PFIZER INC-2009192784

PATIENT

DRUGS (1)
  1. VIBRAMICINA [Suspect]
     Indication: UREAPLASMA INFECTION
     Dosage: 100 MG, 2X/DAY
     Dates: start: 20090331

REACTIONS (2)
  - BLOOD PRESSURE DECREASED [None]
  - DIZZINESS [None]
